FAERS Safety Report 4847401-5 (Version None)
Quarter: 2005Q4

REPORT INFORMATION
  Report Type: 
  Country: None (occurrence: None)
  Receive Date: 20051205
  Receipt Date: 20051121
  Transmission Date: 20060501
  Serious: Yes (Death, Other)
  Sender: FDA-Public Use
  Company Number: USA-2005-0021707

PATIENT
  Sex: 0

DRUGS (1)
  1. OXYCONTIN [Suspect]

REACTIONS (2)
  - COMPLETED SUICIDE [None]
  - DEPENDENCE [None]
